FAERS Safety Report 23207104 (Version 1)
Quarter: 2023Q4

REPORT INFORMATION
  Report Type: Spontaneous
  Country: CN (occurrence: CN)
  Receive Date: 20231120
  Receipt Date: 20231120
  Transmission Date: 20240109
  Serious: Yes (Hospitalization, Other)
  Sender: FDA-Public Use
  Company Number: CN-009507513-2311CHN006954

PATIENT
  Age: 75 Year
  Sex: Female
  Weight: 37 kg

DRUGS (3)
  1. KEYTRUDA [Suspect]
     Active Substance: PEMBROLIZUMAB
     Indication: Small intestine carcinoma
     Dosage: 200 MG, ONCE
     Route: 041
     Dates: start: 20230504, end: 20230504
  2. KEYTRUDA [Suspect]
     Active Substance: PEMBROLIZUMAB
     Indication: Immunomodulatory therapy
  3. SODIUM CHLORIDE [Concomitant]
     Active Substance: SODIUM CHLORIDE
     Indication: Medication dilution
     Dosage: 100 ML ONCE
     Route: 041
     Dates: start: 20230504, end: 20230504

REACTIONS (3)
  - Hypothyroidism [Recovering/Resolving]
  - Muscular weakness [Recovering/Resolving]
  - Drug-induced liver injury [Unknown]

NARRATIVE: CASE EVENT DATE: 20230530
